FAERS Safety Report 9487056 (Version 2)
Quarter: 2013Q3

REPORT INFORMATION
  Report Type: Report from Study
  Country: ES (occurrence: ES)
  Receive Date: 20130829
  Receipt Date: 20130829
  Transmission Date: 20140515
  Serious: Yes (Hospitalization)
  Sender: FDA-Public Use
  Company Number: PHHO2010ES14775

PATIENT
  Age: 76 Year
  Sex: Male
  Weight: 89 kg

DRUGS (4)
  1. ALISKIREN [Suspect]
     Indication: CARDIOVASCULAR DISORDER
     Route: 048
     Dates: start: 20100129, end: 20100927
  2. FUROSEMIDE [Concomitant]
     Indication: CARDIAC FAILURE CHRONIC
     Dates: start: 20100816
  3. ENALAPRIL [Concomitant]
     Indication: CARDIAC FAILURE CHRONIC
     Dates: start: 20091001
  4. CARVEDILOL [Concomitant]
     Indication: CARDIAC FAILURE CHRONIC

REACTIONS (1)
  - Vomiting [Recovering/Resolving]
